FAERS Safety Report 9457092 (Version 2)
Quarter: 2013Q3

REPORT INFORMATION
  Report Type: Spontaneous
  Country: US (occurrence: US)
  Receive Date: 20130814
  Receipt Date: 20130823
  Transmission Date: 20140515
  Serious: Yes (Other)
  Sender: FDA-Public Use
  Company Number: US-AMGEN-USASP2013055645

PATIENT
  Age: 92 Year
  Sex: Female

DRUGS (1)
  1. PROLIA [Suspect]
     Indication: OSTEOPOROSIS POSTMENOPAUSAL
     Dosage: UNK
     Route: 065
     Dates: start: 201110

REACTIONS (14)
  - Dementia [Unknown]
  - Femur fracture [Unknown]
  - Amnesia [Unknown]
  - Blindness [Unknown]
  - Macular degeneration [Unknown]
  - Abasia [Unknown]
  - Middle insomnia [Unknown]
  - Back pain [Unknown]
  - Myalgia [Unknown]
  - Arthralgia [Unknown]
  - Bone pain [Unknown]
  - Blood calcium decreased [Unknown]
  - Musculoskeletal pain [Unknown]
  - Pain in extremity [Unknown]
